FAERS Safety Report 25269788 (Version 4)
Quarter: 2025Q2

REPORT INFORMATION
  Report Type: Spontaneous
  Country: US (occurrence: US)
  Receive Date: 20250505
  Receipt Date: 20250623
  Transmission Date: 20250717
  Serious: Yes (Other)
  Sender: DR REDDYS
  Company Number: US-DRL-USA-USA/2025/04/006051

PATIENT
  Age: 64 Year
  Sex: Male
  Weight: 111.13 kg

DRUGS (1)
  1. FLUCONAZOLE [Suspect]
     Active Substance: FLUCONAZOLE
     Indication: Localised infection
     Route: 048

REACTIONS (3)
  - Urticaria [Recovering/Resolving]
  - Eczema [Recovering/Resolving]
  - Psoriasis [Recovering/Resolving]
